FAERS Safety Report 12249711 (Version 2)
Quarter: 2017Q2

REPORT INFORMATION
  Report Type: Spontaneous
  Country: JP (occurrence: JP)
  Receive Date: 20160408
  Receipt Date: 20170605
  Transmission Date: 20170830
  Serious: Yes (Other)
  Sender: FDA-Public Use
  Company Number: JP-SA-2016SA065894

PATIENT
  Age: 70 Year
  Sex: Male

DRUGS (8)
  1. ELPLAT [Suspect]
     Active Substance: OXALIPLATIN
     Indication: RECTAL CANCER
     Dosage: INJECTION SOLUTION
     Route: 040
  2. ELPLAT [Suspect]
     Active Substance: OXALIPLATIN
     Indication: RECTAL CANCER
     Dosage: INJECTION SOLUTION, IV BOLUS FOLLOWED BY IV DRIP
  3. 5-FU [Concomitant]
     Active Substance: FLUOROURACIL
     Dosage: CONTINUOUS INFUSION
  4. 5-FU [Concomitant]
     Active Substance: FLUOROURACIL
     Dosage: BOLUS
  5. LEVOFOLINATE [Suspect]
     Active Substance: LEVOLEUCOVORIN CALCIUM
     Indication: RECTAL CANCER
     Dosage: INJECTION
     Route: 041
  6. LEVOFOLINATE [Suspect]
     Active Substance: LEVOLEUCOVORIN CALCIUM
     Indication: RECTAL CANCER
     Dosage: INJECTION
     Route: 040
  7. LEVOFOLINATE [Suspect]
     Active Substance: LEVOLEUCOVORIN CALCIUM
     Indication: RECTAL CANCER
     Dosage: INJECTION, IV BOLUS FOLLOWED BY IV DRIP
  8. ELPLAT [Suspect]
     Active Substance: OXALIPLATIN
     Indication: RECTAL CANCER
     Dosage: INJECTION SOLUTION
     Route: 041

REACTIONS (5)
  - Gastrointestinal perforation [Unknown]
  - Intestinal ulcer [Unknown]
  - Neuropathy peripheral [Unknown]
  - Constipation [Unknown]
  - Vomiting [Unknown]
